FAERS Safety Report 5152257-X (Version None)
Quarter: 2006Q4

REPORT INFORMATION
  Report Type: 
  Country: None (occurrence: None)
  Receive Date: 20061116
  Receipt Date: 20060922
  Transmission Date: 20070319
  Serious: Yes (Disabling, Other)
  Sender: FDA-Public Use
  Company Number: US-PURDUE-USA_2006_0025695

PATIENT
  Sex: Male

DRUGS (4)
  1. OXYCONTIN [Suspect]
     Indication: DRUG ABUSER
     Dosage: UNK, UNK
  2. OXYCODONE HYDROCHLORIDE [Suspect]
     Indication: DRUG ABUSER
     Dosage: UNK, UNK
  3. MORPHINE SULFATE [Suspect]
     Indication: DRUG ABUSER
     Dosage: UNK, UNK
  4. COCAINE [Suspect]
     Indication: DRUG ABUSER
     Dosage: UNK, UNK

REACTIONS (10)
  - DEPENDENCE [None]
  - DRUG ABUSER [None]
  - DYSARTHRIA [None]
  - GAIT DISTURBANCE [None]
  - IMPAIRED DRIVING ABILITY [None]
  - IMPAIRED WORK ABILITY [None]
  - INCOHERENT [None]
  - INJURY [None]
  - ROAD TRAFFIC ACCIDENT [None]
  - SOMNOLENCE [None]
